FAERS Safety Report 23040161 (Version 1)
Quarter: 2023Q4

REPORT INFORMATION
  Report Type: Spontaneous
  Country: US (occurrence: None)
  Receive Date: 20231006
  Receipt Date: 20231006
  Transmission Date: 20240109
  Serious: No
  Sender: FDA-Public Use
  Company Number: None

PATIENT
  Age: 58 Year
  Sex: Female
  Weight: 58.95 kg

DRUGS (8)
  1. REGENER-EYES PRO [Suspect]
     Active Substance: GLYCERIN
     Indication: Dry eye
     Dosage: OTHER QUANTITY : 1 DROP(S);?FREQUENCY : 4 TIMES A DAY;?
     Route: 047
     Dates: start: 20230925, end: 20230927
  2. SYNTHROID [Concomitant]
     Active Substance: LEVOTHYROXINE SODIUM
  3. Estrogen patches [Concomitant]
  4. PROGESTERONE [Concomitant]
     Active Substance: PROGESTERONE
  5. TESTOSTERONE [Concomitant]
     Active Substance: TESTOSTERONE
  6. MINERALS\OMEGA-3 FATTY ACIDS\VITAMINS [Concomitant]
     Active Substance: MINERALS\OMEGA-3 FATTY ACIDS\VITAMINS
  7. OMEGA 3 [Concomitant]
     Active Substance: CAPSAICIN
  8. COENZYME Q10 [Concomitant]
     Active Substance: DIETARY SUPPLEMENT\UBIDECARENONE

REACTIONS (6)
  - Eczema eyelids [None]
  - Ocular hyperaemia [None]
  - Eye irritation [None]
  - Eyelids pruritus [None]
  - Eye pruritus [None]
  - Product formulation issue [None]

NARRATIVE: CASE EVENT DATE: 20230927
